FAERS Safety Report 25547819 (Version 1)
Quarter: 2025Q3

REPORT INFORMATION
  Report Type: Spontaneous
  Country: US (occurrence: US)
  Receive Date: 20250714
  Receipt Date: 20250714
  Transmission Date: 20251021
  Serious: No
  Sender: ROCHE
  Company Number: US-ROCHE-10000330692

PATIENT

DRUGS (1)
  1. VABYSMO [Suspect]
     Active Substance: FARICIMAB-SVOA
     Indication: Product use in unapproved indication
     Route: 065

REACTIONS (3)
  - Drug ineffective [Unknown]
  - Haemorrhage [Unknown]
  - Off label use [Unknown]
